FAERS Safety Report 17124890 (Version 1)
Quarter: 2019Q4

REPORT INFORMATION
  Report Type: Report from Study
  Country: MX (occurrence: MX)
  Receive Date: 20191206
  Receipt Date: 20191206
  Transmission Date: 20200122
  Serious: Yes (Other)
  Sender: FDA-Public Use
  Company Number: MX-BAYER-2019-216209

PATIENT
  Age: 47 Year
  Sex: Male

DRUGS (2)
  1. NEXAVAR [Suspect]
     Active Substance: SORAFENIB
     Indication: RENAL CELL CARCINOMA
     Dosage: HE TOOK 4 TABLETS IN THE MORNING (ONLY IN FEBRUARY)
     Route: 048
     Dates: start: 201902
  2. NEXAVAR [Suspect]
     Active Substance: SORAFENIB
     Indication: RENAL CELL CARCINOMA
     Dosage: 80 MG DAILY
     Route: 048

REACTIONS (14)
  - Acne [Recovered/Resolved]
  - Off label use [Recovered/Resolved]
  - Scrotal ulcer [Recovered/Resolved]
  - Pruritus [Recovered/Resolved]
  - Pharyngeal ulceration [Recovered/Resolved]
  - Abdominal pain upper [Not Recovered/Not Resolved]
  - Penile exfoliation [Recovered/Resolved]
  - Skin exfoliation [Recovered/Resolved]
  - Tongue ulceration [Recovered/Resolved]
  - Penile ulceration [Recovered/Resolved]
  - Muscle spasms [Not Recovered/Not Resolved]
  - Pain in extremity [Not Recovered/Not Resolved]
  - Anal ulcer [Recovered/Resolved]
  - Scrotal exfoliation [Recovered/Resolved]

NARRATIVE: CASE EVENT DATE: 201902
